FAERS Safety Report 8322250 (Version 5)
Quarter: 2016Q1

REPORT INFORMATION
  Report Type: Report from Study
  Country: US (occurrence: US)
  Receive Date: 20120105
  Receipt Date: 20160311
  Transmission Date: 20160526
  Serious: Yes (Hospitalization, Other)
  Sender: FDA-Public Use
  Company Number: US-AMGEN-USASP2012000159

PATIENT
  Age: 65 Year
  Sex: Female

DRUGS (2)
  1. ENBREL [Suspect]
     Active Substance: ETANERCEPT
     Indication: RHEUMATOID ARTHRITIS
     Dosage: 50 MG, QWK
     Route: 058
     Dates: start: 20010401
  2. PREDNISONE. [Concomitant]
     Active Substance: PREDNISONE
     Dosage: 5 MG, QD

REACTIONS (22)
  - Malaise [Unknown]
  - Dysstasia [Unknown]
  - Pruritus [Recovered/Resolved]
  - Mobility decreased [Unknown]
  - Psoriasis [Recovered/Resolved]
  - Drug effect decreased [Unknown]
  - Memory impairment [Unknown]
  - Stress [Unknown]
  - Fluid retention [Unknown]
  - Peripheral swelling [Unknown]
  - Rheumatoid arthritis [Unknown]
  - Fall [Recovered/Resolved]
  - Trigger finger [Unknown]
  - Pain in extremity [Unknown]
  - Impaired driving ability [Unknown]
  - Limb discomfort [Unknown]
  - Fatigue [Unknown]
  - Grip strength decreased [Unknown]
  - Skin candida [Recovered/Resolved]
  - Spinal fracture [Unknown]
  - Skin exfoliation [Recovered/Resolved]
  - Rash [Recovered/Resolved]

NARRATIVE: CASE EVENT DATE: 2006
